FAERS Safety Report 7115260-6 (Version None)
Quarter: 2010Q4

REPORT INFORMATION
  Report Type: 
  Country: None (occurrence: None)
  Receive Date: 20101122
  Receipt Date: 20101112
  Transmission Date: 20110411
  Serious: Yes (Hospitalization, Other)
  Sender: FDA-Public Use
  Company Number: US-US-EMD SERONO, INC.-235415K09USA

PATIENT
  Sex: Male
  Weight: 100 kg

DRUGS (3)
  1. REBIF [Suspect]
     Indication: MULTIPLE SCLEROSIS
     Route: 058
     Dates: start: 20090108
  2. UNSPECIFIED MEDICATIONS [Concomitant]
     Route: 065
  3. UNSPECIFIED MEDICATION [Concomitant]
     Indication: PREMEDICATION

REACTIONS (5)
  - ARTERIAL THROMBOSIS LIMB [None]
  - BLOOD GLUCOSE ABNORMAL [None]
  - MUSCULAR WEAKNESS [None]
  - MYOCARDIAL INFARCTION [None]
  - WEIGHT INCREASED [None]
